FAERS Safety Report 24816064 (Version 1)
Quarter: 2025Q1

REPORT INFORMATION
  Report Type: Spontaneous
  Country: US (occurrence: None)
  Receive Date: 20250106
  Receipt Date: 20250106
  Transmission Date: 20250408
  Serious: Yes (Death)
  Sender: FDA-CTU
  Company Number: None

PATIENT
  Age: 53 Year
  Sex: Male

DRUGS (4)
  1. SIROLIMUS [Suspect]
     Active Substance: SIROLIMUS
     Dosage: FREQUENCY : DAILY;?
     Route: 048
     Dates: start: 20240521, end: 20241210
  2. SIROLIMUS [Concomitant]
     Active Substance: SIROLIMUS
  3. MYCOPHENOLIC ACID [Concomitant]
     Active Substance: MYCOPHENOLIC ACID
  4. VELTASSA [Concomitant]
     Active Substance: PATIROMER

REACTIONS (1)
  - Death [None]

NARRATIVE: CASE EVENT DATE: 20250103
